FAERS Safety Report 14806483 (Version 3)
Quarter: 2018Q3

REPORT INFORMATION
  Report Type: Report from Study
  Country: DE (occurrence: DE)
  Receive Date: 20180425
  Receipt Date: 20180927
  Transmission Date: 20181010
  Serious: Yes (Death, Hospitalization)
  Sender: FDA-Public Use
  Company Number: DE-PFIZER INC-2018166322

PATIENT
  Age: 71 Year
  Sex: Female
  Weight: 79.7 kg

DRUGS (17)
  1. BEVACIZUMAB. [Suspect]
     Active Substance: BEVACIZUMAB
     Indication: OVARIAN CANCER
     Dosage: 1080 MG, EVERY 3 WEEKS
     Route: 042
     Dates: start: 20150812
  2. NOVAMINSULFON [Concomitant]
     Active Substance: METAMIZOLE
     Indication: TUMOUR PAIN
     Dosage: 2000 MG, 1X/DAY
     Route: 048
     Dates: start: 201507
  3. CARBOPLATIN. [Concomitant]
     Active Substance: CARBOPLATIN
     Dosage: 575 MG, EVERY 3 WEEKS
     Route: 042
     Dates: start: 20150812, end: 20150812
  4. TARGIN [Concomitant]
     Active Substance: NALOXONE HYDROCHLORIDE\OXYCODONE HYDROCHLORIDE
     Indication: TUMOUR PAIN
     Dosage: 10/5MG (^2 ONCE DAILY^)
     Route: 048
     Dates: start: 201507
  5. PACLITAXEL. [Suspect]
     Active Substance: PACLITAXEL
     Indication: OVARIAN CANCER
     Dosage: 329 MG, EVERY 3 WEEKS
     Route: 042
     Dates: start: 20150722, end: 20150722
  6. CARBOPLATIN. [Concomitant]
     Active Substance: CARBOPLATIN
     Dosage: 505 MG, EVERY 3 WEEKS
     Route: 042
     Dates: start: 20151118, end: 20151118
  7. CARBOPLATIN. [Concomitant]
     Active Substance: CARBOPLATIN
     Dosage: 655 MG, EVERY 3 WEEKS
     Route: 042
     Dates: start: 20150916, end: 20150916
  8. CARBOPLATIN. [Concomitant]
     Active Substance: CARBOPLATIN
     Dosage: 520 MG, EVERY 3 WEEKS
     Route: 042
     Dates: start: 20151007, end: 20151007
  9. BEVACIZUMAB. [Suspect]
     Active Substance: BEVACIZUMAB
     Dosage: 1050 MG, EVERY 3 WEEKS
     Route: 042
     Dates: start: 20150916
  10. BEVACIZUMAB. [Suspect]
     Active Substance: BEVACIZUMAB
     Dosage: 1040 MG, EVERY 3 WEEKS
     Route: 042
     Dates: start: 20160706, end: 20161019
  11. CARBOPLATIN. [Concomitant]
     Active Substance: CARBOPLATIN
     Dosage: 560 MG, EVERY 3 WEEKS
     Route: 042
     Dates: start: 20151028, end: 20151028
  12. L?THYROXIN [Concomitant]
     Active Substance: LEVOTHYROXINE SODIUM
     Indication: HYPOTHYROIDISM
     Dosage: 125 UG, UNK
     Route: 048
  13. BEVACIZUMAB. [Suspect]
     Active Substance: BEVACIZUMAB
     Dosage: 1060 MG, EVERY 3 WEEKS
     Route: 042
     Dates: start: 20161019
  14. CARBOPLATIN. [Concomitant]
     Active Substance: CARBOPLATIN
     Indication: OVARIAN CANCER
     Dosage: 590 MG, EVERY 3 WEEKS
     Route: 042
     Dates: start: 20150722, end: 20150722
  15. PACLITAXEL. [Suspect]
     Active Substance: PACLITAXEL
     Dosage: 249 MG, EVERY 3 WEEKS
     Route: 042
     Dates: start: 20151007, end: 20151007
  16. IPRATROPIUM W/SALBUTAMOL [Concomitant]
     Indication: CHRONIC OBSTRUCTIVE PULMONARY DISEASE
     Dosage: 10 ML, 1X/DAY
     Route: 048
  17. PANTOPRAZOL [Concomitant]
     Active Substance: PANTOPRAZOLE SODIUM
     Dosage: 40 MG, UNK
     Route: 048

REACTIONS (4)
  - Diarrhoea [Recovered/Resolved]
  - Hypersensitivity [Recovered/Resolved]
  - Death [Fatal]
  - Vomiting [Recovered/Resolved]

NARRATIVE: CASE EVENT DATE: 20150918
